FAERS Safety Report 5844017-9 (Version None)
Quarter: 2008Q3

REPORT INFORMATION
  Report Type: 
  Country: None (occurrence: None)
  Receive Date: 20080813
  Receipt Date: 20080806
  Transmission Date: 20090109
  Serious: Yes (Death)
  Sender: FDA-Public Use
  Company Number: US-PURDUE-USA_2008_0034313

PATIENT
  Age: 45 Year
  Sex: Female
  Weight: 63 kg

DRUGS (11)
  1. MS CONTIN [Suspect]
     Indication: RHEUMATOID ARTHRITIS
     Dosage: 1 TABLET, Q12H
     Dates: start: 20031209
  2. BUSPAR [Concomitant]
     Indication: DRUG USE FOR UNKNOWN INDICATION
     Dosage: 3 UNK, UNK
     Dates: start: 20031210
  3. QUETIAPINE FUMARATE [Suspect]
     Indication: DEPRESSION
     Dosage: 300 MG, DAILY
  4. PERCOCET [Suspect]
     Indication: DRUG USE FOR UNKNOWN INDICATION
     Dosage: 5 UNK, UNK
     Dates: start: 20031209
  5. ZOLOFT [Concomitant]
     Indication: DRUG USE FOR UNKNOWN INDICATION
     Dosage: 300 MG, DAILY
  6. DEPAKOTE [Concomitant]
     Indication: DEPRESSION
     Dosage: 500 MG, DAILY
     Dates: start: 20031129
  7. KLONOPIN [Concomitant]
     Indication: PANIC ATTACK
     Dosage: 2 MG, DAILY
     Dates: start: 20031209
  8. REMERON [Concomitant]
     Indication: SLEEP DISORDER
     Dosage: 300 MG, DAILY
     Dates: start: 20031209
  9. PRILOSEC [Concomitant]
     Indication: ULCER
     Dosage: 20 MG, DAILY
     Dates: start: 20031209
  10. SYNTHROID [Concomitant]
     Indication: HYPOTHYROIDISM
     Dosage: .75 UNK, DAILY
  11. DURAGESIC-100 [Suspect]
     Indication: RHEUMATOID ARTHRITIS
     Route: 065

REACTIONS (3)
  - ASPIRATION [None]
  - MULTIPLE DRUG OVERDOSE ACCIDENTAL [None]
  - RESPIRATORY DEPRESSION [None]
